FAERS Safety Report 6263205-3 (Version None)
Quarter: 2009Q3

REPORT INFORMATION
  Report Type: 
  Country: None (occurrence: None)
  Receive Date: 20090710
  Receipt Date: 20090630
  Transmission Date: 20100115
  Serious: Yes (Other)
  Sender: FDA-Public Use
  Company Number: FR-PFIZER INC-2006018162

PATIENT
  Age: 56 Year

DRUGS (1)
  1. EXEMESTANE [Suspect]
     Indication: BREAST CANCER
     Dosage: 25 MG, 1X/DAY
     Dates: start: 20051006, end: 20060113

REACTIONS (6)
  - ARTHRALGIA [None]
  - JOINT INJURY [None]
  - MYALGIA [None]
  - NAUSEA [None]
  - VERTIGO [None]
  - VOMITING [None]
